FAERS Safety Report 25607061 (Version 1)
Quarter: 2025Q3

REPORT INFORMATION
  Report Type: Spontaneous
  Country: AU (occurrence: AU)
  Receive Date: 20250725
  Receipt Date: 20250725
  Transmission Date: 20251020
  Serious: Yes (Death, Other)
  Sender: RANBAXY
  Company Number: AU-RANBAXY-2014RR-86335

PATIENT
  Age: 52 Year
  Sex: Male

DRUGS (4)
  1. DULOXETINE [Suspect]
     Active Substance: DULOXETINE
     Indication: Product used for unknown indication
     Route: 065
  2. LAMOTRIGINE [Suspect]
     Active Substance: LAMOTRIGINE
     Indication: Product used for unknown indication
     Route: 065
  3. QUETIAPINE [Suspect]
     Active Substance: QUETIAPINE
     Indication: Product used for unknown indication
     Route: 065
  4. DILTIAZEM [Suspect]
     Active Substance: DILTIAZEM
     Indication: Product used for unknown indication
     Route: 065

REACTIONS (2)
  - Toxicity to various agents [Fatal]
  - Intentional self-injury [Fatal]
